FAERS Safety Report 8279573-7 (Version None)
Quarter: 2012Q2

REPORT INFORMATION
  Report Type: 
  Country: None (occurrence: None)
  Receive Date: 20120412
  Receipt Date: 20110330
  Transmission Date: 20120825
  Serious: Yes (Hospitalization)
  Sender: FDA-Public Use
  Company Number: US-ASTRAZENECA-2011SE17942

PATIENT
  Age: 73 Year
  Sex: Female

DRUGS (6)
  1. SYNTHROID [Concomitant]
     Indication: HYPOTHYROIDISM
  2. NEXIUM [Suspect]
     Indication: GASTROOESOPHAGEAL REFLUX DISEASE
     Route: 048
  3. BIOIDENTICAL HORMONES [Concomitant]
     Indication: HYPOTHYROIDISM
  4. PERCOCET [Suspect]
     Indication: PAIN
     Route: 065
     Dates: start: 20110304, end: 20110101
  5. DEXILANT [Suspect]
     Indication: GASTROOESOPHAGEAL REFLUX DISEASE
     Route: 048
     Dates: start: 20110303
  6. UNKNOWN HOMEOPATHIC EAR DROP [Concomitant]
     Indication: TINNITUS
     Dates: start: 20110222

REACTIONS (11)
  - RASH [None]
  - HYPOTHYROIDISM [None]
  - ARTHRALGIA [None]
  - GASTROOESOPHAGEAL REFLUX DISEASE [None]
  - DIZZINESS [None]
  - VISION BLURRED [None]
  - BACK PAIN [None]
  - NAUSEA [None]
  - ABDOMINAL DISCOMFORT [None]
  - TINNITUS [None]
  - NEPHROLITHIASIS [None]
